FAERS Safety Report 20131529 (Version 1)
Quarter: 2021Q4

REPORT INFORMATION
  Report Type: Spontaneous
  Country: US (occurrence: US)
  Receive Date: 20211130
  Receipt Date: 20211130
  Transmission Date: 20220303
  Serious: No
  Sender: FDA-Public Use
  Company Number: US-REGENERON PHARMACEUTICALS, INC.-2021-59923

PATIENT

DRUGS (2)
  1. LIBTAYO [Suspect]
     Active Substance: CEMIPLIMAB-RWLC
     Indication: Non-small cell lung cancer
     Dosage: 350 MG, Q3W
  2. LIBTAYO [Suspect]
     Active Substance: CEMIPLIMAB-RWLC
     Dosage: 350 MG, Q3W
     Dates: start: 20210611, end: 20210611

REACTIONS (4)
  - Anxiety [Unknown]
  - Chest pain [Unknown]
  - Back pain [Unknown]
  - Fatigue [Unknown]
